FAERS Safety Report 24742506 (Version 3)
Quarter: 2025Q1

REPORT INFORMATION
  Report Type: Report from Study
  Country: GB (occurrence: GB)
  Receive Date: 20241217
  Receipt Date: 20250211
  Transmission Date: 20250408
  Serious: Yes (Other)
  Sender: SAMSUNG BIOEPIS
  Company Number: GB-SAMSUNG BIOEPIS-SB-2024-36254

PATIENT
  Age: 83 Year
  Sex: Female

DRUGS (1)
  1. IMRALDI [Suspect]
     Active Substance: ADALIMUMAB
     Indication: Crohn^s disease
     Dosage: 40 MG/0.8 ML;
     Route: 058
     Dates: start: 20241125

REACTIONS (3)
  - Neuropathy peripheral [Unknown]
  - Fine motor skill dysfunction [Unknown]
  - Limb discomfort [Unknown]
